FAERS Safety Report 6933154-3 (Version None)
Quarter: 2010Q3

REPORT INFORMATION
  Report Type: 
  Country: None (occurrence: None)
  Receive Date: 20100820
  Receipt Date: 20100812
  Transmission Date: 20110219
  Serious: Yes (Other)
  Sender: FDA-Public Use
  Company Number: US-BIOGENIDEC-2010BI024316

PATIENT
  Age: 47 Year
  Sex: Female

DRUGS (2)
  1. TYSABRI [Suspect]
     Indication: MULTIPLE SCLEROSIS
     Route: 042
     Dates: start: 20091001
  2. AMPYRA [Concomitant]
     Indication: GAIT DISTURBANCE

REACTIONS (11)
  - BACK PAIN [None]
  - CATHETER SITE SWELLING [None]
  - CEREBRAL ARTERY EMBOLISM [None]
  - DRUG EFFECT DECREASED [None]
  - FLUID RETENTION [None]
  - HYPOTENSION [None]
  - INFUSION SITE SCAR [None]
  - MEMORY IMPAIRMENT [None]
  - MULTIPLE SCLEROSIS RELAPSE [None]
  - NAUSEA [None]
  - POOR VENOUS ACCESS [None]
